FAERS Safety Report 10302770 (Version 1)
Quarter: 2014Q3

REPORT INFORMATION
  Report Type: Spontaneous
  Country: US (occurrence: US)
  Receive Date: 20140714
  Receipt Date: 20140714
  Transmission Date: 20150326
  Serious: Yes (Other)
  Sender: FDA-Public Use
  Company Number: US-GLAXOSMITHKLINE-A1080749A

PATIENT
  Age: 42 Year
  Sex: Male

DRUGS (3)
  1. TRILEPTAL [Concomitant]
     Active Substance: OXCARBAZEPINE
  2. POTIGA [Suspect]
     Active Substance: EZOGABINE
     Indication: CONVULSION
     Dosage: 100MG TWICE PER DAY
     Route: 048
     Dates: start: 201210
  3. DILANTIN [Concomitant]
     Active Substance: PHENYTOIN

REACTIONS (2)
  - Mental impairment [Not Recovered/Not Resolved]
  - Barbiturates positive [Not Recovered/Not Resolved]

NARRATIVE: CASE EVENT DATE: 20140701
